FAERS Safety Report 11675740 (Version 3)
Quarter: 2015Q4

REPORT INFORMATION
  Report Type: Spontaneous
  Country: US (occurrence: US)
  Receive Date: 20151028
  Receipt Date: 20151203
  Transmission Date: 20160304
  Serious: Yes (Death, Hospitalization)
  Sender: FDA-Public Use
  Company Number: US-PFIZER INC-2015324531

PATIENT
  Age: 68 Year
  Sex: Male
  Weight: 68.27 kg

DRUGS (12)
  1. VORICONAZOLE. [Suspect]
     Active Substance: VORICONAZOLE
     Indication: PULMONARY HAEMORRHAGE
     Dosage: 200 MG, 2X/DAY
     Route: 048
     Dates: start: 201507
  2. VLCODLN [Concomitant]
     Indication: CHEST PAIN
     Dosage: UNK, 4X/DAY (1-2 EVERY 6 HOURS AS NEED) HYDROCODONE- 5 MG-ACETAMINOPHEN-500 MG
  3. VLCODLN [Concomitant]
     Indication: COUGH
  4. BACTRIM DS [Concomitant]
     Active Substance: SULFAMETHOXAZOLE\TRIMETHOPRIM
     Dosage: 1 DF, 2X/DAY (SULFAMETHOXAZOLE- 800MG , TRIMETHOPRIM- 160MG)
  5. ATROVENT HFA [Concomitant]
     Active Substance: IPRATROPIUM BROMIDE
     Dosage: 2 DF, 3X/DAY (17 MCGIACT AERS)
  6. VFEND [Suspect]
     Active Substance: VORICONAZOLE
     Indication: PULMONARY HAEMORRHAGE
     Dosage: UNK
     Dates: start: 201504
  7. VFEND [Suspect]
     Active Substance: VORICONAZOLE
     Indication: BRONCHOPULMONARY ASPERGILLOSIS
  8. IPRATROPIUM/ALBUTEROL [Concomitant]
     Active Substance: ALBUTEROL\IPRATROPIUM
     Dosage: UNK, 4X/DAY (IPRATROPIUM- 0.5 MG/3ML/ALBUTEROL-2.5 MG/3ML 3 MIS BY NEB)
  9. MUCINEX [Concomitant]
     Active Substance: GUAIFENESIN
     Dosage: 600 MG, 2X/DAY
     Route: 048
  10. VORICONAZOLE. [Suspect]
     Active Substance: VORICONAZOLE
     Indication: ASPERGILLUS INFECTION
  11. VORICONAZOLE. [Suspect]
     Active Substance: VORICONAZOLE
     Indication: BRONCHOPULMONARY ASPERGILLOSIS
  12. PROAIR HFA [Concomitant]
     Active Substance: ALBUTEROL SULFATE
     Dosage: 2 DF, AS NEEDED (108 (90 BASE) MCG/ACT 2 PUFFS AS NEEDED EVERY 6 HOURS)

REACTIONS (6)
  - Drug resistance [Fatal]
  - Pulmonary sarcoidosis [Fatal]
  - Condition aggravated [Fatal]
  - Aspergillus infection [Fatal]
  - Respiratory failure [Fatal]
  - Haemoptysis [Fatal]

NARRATIVE: CASE EVENT DATE: 20150930
